FAERS Safety Report 7797335-1 (Version None)
Quarter: 2011Q4

REPORT INFORMATION
  Report Type: 
  Country: None (occurrence: None)
  Receive Date: 20111005
  Receipt Date: 20110927
  Transmission Date: 20120403
  Serious: Yes (Hospitalization)
  Sender: FDA-Public Use
  Company Number: US-SANOFI-AVENTIS-2011SA063537

PATIENT
  Age: 77 Year
  Sex: Male

DRUGS (15)
  1. LASIX [Suspect]
     Indication: HYPERTENSION
     Route: 065
  2. INVESTIGATIONAL DRUG [Suspect]
     Indication: TYPE 2 DIABETES MELLITUS
     Route: 048
     Dates: start: 20101021
  3. PLACEBO [Suspect]
     Indication: TYPE 2 DIABETES MELLITUS
     Route: 048
     Dates: start: 20101021
  4. ARICEPT [Concomitant]
  5. COREG [Suspect]
     Indication: HYPERTENSION
     Route: 065
  6. LISINOPRIL [Concomitant]
  7. DIGOXIN [Suspect]
     Indication: CARDIAC FAILURE CONGESTIVE
     Route: 065
  8. COUMADIN [Concomitant]
  9. ATORVASTATIN [Concomitant]
  10. ATIVAN [Concomitant]
  11. LEXAPRO [Concomitant]
  12. LANTUS [Concomitant]
  13. DIPHENHYDRAMINE HYDROCHLORIDE [Concomitant]
  14. ASPIRIN [Concomitant]
  15. NOVOLOG [Concomitant]

REACTIONS (1)
  - ANKLE FRACTURE [None]
